FAERS Safety Report 16532067 (Version 4)
Quarter: 2019Q3

REPORT INFORMATION
  Report Type: Report from Study
  Country: CO (occurrence: CO)
  Receive Date: 20190704
  Receipt Date: 20190913
  Transmission Date: 20191004
  Serious: Yes (Other)
  Sender: FDA-Public Use
  Company Number: CO-AEGERION PHARMACEUTICAL, INC-AEGR004364

PATIENT

DRUGS (11)
  1. INSULIN LISPRO [Concomitant]
     Active Substance: INSULIN LISPRO
     Dosage: UNK
  2. INSULIN LISPRO [Concomitant]
     Active Substance: INSULIN LISPRO
     Indication: TYPE 1 DIABETES MELLITUS
     Dosage: 6-10 UNK, BEFORE MEALS
     Route: 058
     Dates: start: 20120509
  3. METRELEPTIN [Suspect]
     Active Substance: METRELEPTIN
     Dosage: 0.11 MG/KG (0.46 ML/ 2,36MG/DAIY) QD
     Route: 058
     Dates: start: 20190423, end: 20190723
  4. METRELEPTIN [Suspect]
     Active Substance: METRELEPTIN
     Dosage: 0.13 MG/KG (DIVIDED IN 2 DOSES) QD
     Route: 058
     Dates: start: 20190724
  5. OMEGA 3                            /01334101/ [Concomitant]
     Active Substance: OMEGA-3 FATTY ACIDS
     Indication: HYPERTRIGLYCERIDAEMIA
     Dosage: 3 G, QD
     Route: 048
     Dates: start: 20160526
  6. INSULIN DETEMIR [Concomitant]
     Active Substance: INSULIN DETEMIR
     Indication: TYPE 1 DIABETES MELLITUS
     Dosage: 38 UNK, AM AND PM
     Route: 058
     Dates: start: 20160517
  7. GEMFIBROZIL. [Concomitant]
     Active Substance: GEMFIBROZIL
     Indication: HYPERTRIGLYCERIDAEMIA
     Dosage: 300 MG, QD
     Route: 048
     Dates: start: 20190209
  8. INSULIN [Concomitant]
     Active Substance: INSULIN NOS
     Indication: PRODUCT USED FOR UNKNOWN INDICATION
  9. METRELEPTIN [Suspect]
     Active Substance: METRELEPTIN
     Indication: LIPODYSTROPHY ACQUIRED
     Dosage: 0.06 MG/KG (0.02 ML) , QD
     Dates: start: 20170527
  10. METRELEPTIN [Suspect]
     Active Substance: METRELEPTIN
     Dosage: 0.10 MG/KG, QD
     Route: 058
     Dates: end: 20190422
  11. LEVOTHYROXINE. [Concomitant]
     Active Substance: LEVOTHYROXINE
     Indication: AUTOIMMUNE THYROIDITIS
     Dosage: 50 MCGS, QD
     Route: 048
     Dates: start: 201505

REACTIONS (11)
  - Diet noncompliance [Recovering/Resolving]
  - Condition aggravated [Recovering/Resolving]
  - Insulin resistance [Unknown]
  - Product dose omission [Unknown]
  - Product physical issue [Recovered/Resolved]
  - Hepatic steatosis [Recovering/Resolving]
  - Hypertriglyceridaemia [Recovering/Resolving]
  - Diabetes mellitus [Unknown]
  - Hepatic enzyme increased [Recovered/Resolved]
  - Hyperphagia [Recovering/Resolving]
  - Drug ineffective [Unknown]

NARRATIVE: CASE EVENT DATE: 20171121
